FAERS Safety Report 6861135-7 (Version None)
Quarter: 2010Q3

REPORT INFORMATION
  Report Type: 
  Country: None (occurrence: None)
  Receive Date: 20100720
  Receipt Date: 20100715
  Transmission Date: 20110219
  Serious: Yes (Hospitalization)
  Sender: FDA-Public Use
  Company Number: US-JNJFOC-20100405797

PATIENT
  Sex: Male
  Weight: 103.9 kg

DRUGS (6)
  1. CLADRIBINE [Suspect]
     Indication: MANTLE CELL LYMPHOMA
     Route: 042
  2. CLADRIBINE [Suspect]
     Route: 042
  3. VELCADE [Suspect]
     Indication: MANTLE CELL LYMPHOMA
     Route: 042
  4. VELCADE [Suspect]
     Route: 042
  5. RITUXAN [Suspect]
     Indication: MANTLE CELL LYMPHOMA
     Route: 042
  6. RITUXAN [Suspect]
     Route: 042

REACTIONS (6)
  - DEEP VEIN THROMBOSIS [None]
  - PAPILLOEDEMA [None]
  - PULMONARY EMBOLISM [None]
  - SEPSIS [None]
  - THROMBOCYTOPENIA [None]
  - VARICELLA [None]
